FAERS Safety Report 17330330 (Version 1)
Quarter: 2020Q1

REPORT INFORMATION
  Report Type: Spontaneous
  Country: US (occurrence: US)
  Receive Date: 20200128
  Receipt Date: 20200128
  Transmission Date: 20200409
  Serious: Yes (Other)
  Sender: FDA-Public Use
  Company Number: US-SA-2020SA021799

PATIENT
  Age: 47 Year
  Sex: Female

DRUGS (1)
  1. KEVZARA [Suspect]
     Active Substance: SARILUMAB
     Indication: RHEUMATOID ARTHRITIS
     Dosage: 200 MG, QOW
     Route: 058
     Dates: start: 20191113, end: 202001

REACTIONS (4)
  - Oral mucosal blistering [Unknown]
  - Urticaria [Unknown]
  - Hypersensitivity [Unknown]
  - Stomatitis [Unknown]

NARRATIVE: CASE EVENT DATE: 20200122
